FAERS Safety Report 17920679 (Version 5)
Quarter: 2020Q3

REPORT INFORMATION
  Report Type: Report from Study
  Country: CA (occurrence: CA)
  Receive Date: 20200621
  Receipt Date: 20200916
  Transmission Date: 20201103
  Serious: Yes (Other)
  Sender: FDA-Public Use
  Company Number: NVSC2019CA013753

PATIENT
  Age: 50 Year
  Sex: Female

DRUGS (3)
  1. SANDOSTATIN LAR DEPOT [Suspect]
     Active Substance: OCTREOTIDE ACETATE
     Indication: PARAGANGLION NEOPLASM
     Dosage: 30 MG, QMO (EVERY 4 WEEKS)
     Route: 030
     Dates: start: 20190610
  2. SANDOSTATIN LAR DEPOT [Suspect]
     Active Substance: OCTREOTIDE ACETATE
     Indication: CARCINOID TUMOUR
     Dosage: 30 MG, QMO (EVERY 4 WEEKS)
     Route: 030
     Dates: start: 20191129
  3. SANDOSTATIN LAR DEPOT [Suspect]
     Active Substance: OCTREOTIDE ACETATE
     Dosage: 30 MG, QMO (EVERY 4 WEEKS)
     Route: 030
     Dates: start: 20200519

REACTIONS (8)
  - Depressed mood [Unknown]
  - Blood pressure increased [Not Recovered/Not Resolved]
  - Malignant neoplasm progression [Unknown]
  - Needle issue [Unknown]
  - Paraganglion neoplasm [Unknown]
  - Carcinoid tumour [Unknown]
  - Fatigue [Unknown]
  - Weight decreased [Unknown]

NARRATIVE: CASE EVENT DATE: 20191004
